FAERS Safety Report 8358637-3 (Version None)
Quarter: 2012Q2

REPORT INFORMATION
  Report Type: 
  Country: None (occurrence: None)
  Receive Date: 20120514
  Receipt Date: 20120503
  Transmission Date: 20120825
  Serious: Yes (Death, Other)
  Sender: FDA-Public Use
  Company Number: GB-ROCHE-1036982

PATIENT
  Sex: Female

DRUGS (7)
  1. RABEPRAZOLE SODIUM [Concomitant]
  2. LUCENTIS [Suspect]
     Indication: AGE-RELATED MACULAR DEGENERATION
     Route: 050
     Dates: start: 20091204
  3. LEVOTHYROXINE SODIUM [Concomitant]
     Dates: start: 20090912
  4. ACETAMINOPHEN [Concomitant]
  5. FUROSEMIDE [Concomitant]
  6. LOPERAMIDE [Concomitant]
  7. LUCENTIS [Suspect]
     Route: 050
     Dates: start: 20110721, end: 20110721

REACTIONS (4)
  - METASTASES TO LARGE INTESTINE [None]
  - BRONCHOPNEUMONIA [None]
  - COLON CANCER [None]
  - CARDIAC FAILURE CONGESTIVE [None]
